FAERS Safety Report 21045325 (Version 1)
Quarter: 2022Q3

REPORT INFORMATION
  Report Type: Spontaneous
  Country: BE (occurrence: BE)
  Receive Date: 20220706
  Receipt Date: 20220706
  Transmission Date: 20221027
  Serious: Yes (Hospitalization)
  Sender: FDA-Public Use
  Company Number: BE-STRIDES ARCOLAB LIMITED-2022SP008205

PATIENT
  Age: 61 Year
  Sex: Male

DRUGS (5)
  1. ETOPOSIDE [Suspect]
     Active Substance: ETOPOSIDE
     Indication: B-cell lymphoma
     Dosage: UNK, LAST COURSE OF HIGH-DOSE BEAM CHEMOTHERAPY
     Route: 065
  2. CARMUSTINE [Suspect]
     Active Substance: CARMUSTINE
     Indication: B-cell lymphoma
     Dosage: UNK, LAST COURSE OF HIGH-DOSE BEAM CHEMOTHERAPY
     Route: 065
  3. CYTARABINE [Suspect]
     Active Substance: CYTARABINE
     Indication: B-cell lymphoma
     Dosage: UNK, LAST COURSE OF HIGH-DOSE BEAM CHEMOTHERAPY
     Route: 065
  4. MELPHALAN [Suspect]
     Active Substance: MELPHALAN
     Indication: B-cell lymphoma
     Dosage: UNK, LAST COURSE OF HIGH-DOSE BEAM CHEMOTHERAPY
     Route: 065
  5. RITUXIMAB [Suspect]
     Active Substance: RITUXIMAB
     Indication: B-cell lymphoma
     Dosage: UNK, 8 INFUSIONS IN TOTAL OVER A PERIOD OF 1 YEAR
     Route: 065

REACTIONS (9)
  - Respiratory depression [Unknown]
  - Thrombocytopenia [Unknown]
  - Anaemia [Unknown]
  - Human herpesvirus 6 encephalitis [Unknown]
  - Human herpesvirus 6 infection reactivation [Unknown]
  - Cytomegalovirus infection reactivation [Unknown]
  - Candida infection [Unknown]
  - Pneumonia [Unknown]
  - Off label use [Unknown]
